FAERS Safety Report 10070098 (Version 1)
Quarter: 2014Q2

REPORT INFORMATION
  Report Type: Spontaneous
  Country: FR (occurrence: FR)
  Receive Date: 20140410
  Receipt Date: 20140410
  Transmission Date: 20141212
  Serious: Yes (Hospitalization)
  Sender: FDA-Public Use
  Company Number: FR-ELI_LILLY_AND_COMPANY-FR201404001438

PATIENT
  Age: 66 Year
  Sex: Female

DRUGS (1)
  1. OPTRUMA [Suspect]
     Indication: PRODUCT USED FOR UNKNOWN INDICATION
     Dosage: 1 DF, QD
     Route: 048
     Dates: start: 20090109, end: 201008

REACTIONS (1)
  - Transient ischaemic attack [Recovered/Resolved]
